FAERS Safety Report 10600870 (Version 1)
Quarter: 2014Q4

REPORT INFORMATION
  Report Type: Report from Study
  Country: US (occurrence: US)
  Receive Date: 20141124
  Receipt Date: 20141124
  Transmission Date: 20150529
  Serious: Yes (Hospitalization, Other)
  Sender: FDA-Public Use
  Company Number: US-AMGEN-USASL2014090757

PATIENT
  Age: 70 Year
  Sex: Female

DRUGS (1)
  1. ENBREL [Suspect]
     Active Substance: ETANERCEPT
     Indication: RHEUMATOID ARTHRITIS
     Dosage: 50 MG, UNK
     Route: 065
     Dates: start: 20130201, end: 201401

REACTIONS (7)
  - Infrequent bowel movements [Recovered/Resolved]
  - Pneumonia [Recovered/Resolved]
  - Weight decreased [Not Recovered/Not Resolved]
  - Pyrexia [Recovered/Resolved]
  - Sepsis [Recovered/Resolved]
  - Infection [Recovered/Resolved]
  - Vomiting [Recovered/Resolved]

NARRATIVE: CASE EVENT DATE: 201401
